FAERS Safety Report 9439992 (Version 1)
Quarter: 2013Q3

REPORT INFORMATION
  Report Type: Spontaneous
  Country: DK (occurrence: DK)
  Receive Date: 20130805
  Receipt Date: 20130805
  Transmission Date: 20140515
  Serious: Yes (Hospitalization)
  Sender: FDA-Public Use
  Company Number: DK-ROCHE-1254284

PATIENT
  Age: 73 Year
  Sex: Female

DRUGS (1)
  1. BONDRONAT [Suspect]
     Indication: METASTASES TO BONE
     Dosage: STYRKE: 50 MG
     Route: 048
     Dates: start: 201103, end: 20120312

REACTIONS (2)
  - Osteonecrosis of jaw [Recovered/Resolved with Sequelae]
  - Jaw operation [Recovered/Resolved]
